FAERS Safety Report 21691240 (Version 1)
Quarter: 2022Q4

REPORT INFORMATION
  Report Type: Spontaneous
  Country: US (occurrence: US)
  Receive Date: 20221207
  Receipt Date: 20221207
  Transmission Date: 20230113
  Serious: No
  Sender: FDA-Public Use
  Company Number: US-AUROBINDO-AUR-APL-2022-034568

PATIENT
  Sex: Female
  Weight: 49 kg

DRUGS (2)
  1. PROGESTERONE [Suspect]
     Active Substance: PROGESTERONE
     Indication: Ureteric cancer
     Dosage: 1 DOSAGE FORM, ONCE A DAY (ONCE A MONTH, 12 DAYS A MONTH LIKE ONE TABLET AT NIGHT)
     Route: 067
  2. ESTROGENS [Concomitant]
     Active Substance: ESTROGENS
     Indication: Product used for unknown indication
     Dosage: UNK
     Route: 065

REACTIONS (6)
  - Menstrual disorder [Unknown]
  - Menstrual discomfort [Unknown]
  - Drug ineffective [Unknown]
  - Product colour issue [Unknown]
  - Product quality issue [Unknown]
  - Product physical issue [Unknown]
